FAERS Safety Report 9691172 (Version 6)
Quarter: 2014Q2

REPORT INFORMATION
  Report Type: Report from Study
  Country: GB (occurrence: GB)
  Receive Date: 20131115
  Receipt Date: 20140609
  Transmission Date: 20141212
  Serious: Yes (Hospitalization, Other)
  Sender: FDA-Public Use
  Company Number: GB-ABBVIE-13P-167-1166690-00

PATIENT
  Age: 27 Year
  Sex: Male

DRUGS (9)
  1. HUMIRA [Suspect]
     Indication: COLITIS ULCERATIVE
     Dosage: ONCE
     Route: 058
     Dates: start: 20130730, end: 20130730
  2. HUMIRA [Suspect]
     Dosage: WEEK 2
     Route: 058
     Dates: start: 20130813, end: 20130813
  3. HUMIRA [Suspect]
     Route: 058
     Dates: start: 20130827
  4. MEZAVAMT XL [Concomitant]
     Indication: COLITIS ULCERATIVE
     Route: 048
     Dates: start: 20130805
  5. MESALAZINE [Concomitant]
     Indication: COLITIS ULCERATIVE
     Route: 054
     Dates: start: 20111029
  6. PREDNISOLONE ACETATE [Concomitant]
     Indication: COLITIS ULCERATIVE
     Route: 054
     Dates: start: 20130308
  7. BRICANYL [Concomitant]
     Indication: ASTHMA
     Route: 055
     Dates: start: 19890515
  8. AMITRIPTYLINE [Concomitant]
     Indication: MIGRAINE
     Route: 048
     Dates: start: 20130609
  9. TRAMADOL [Concomitant]
     Indication: ABDOMINAL PAIN
     Dates: start: 20130727

REACTIONS (1)
  - Colitis ulcerative [Recovered/Resolved]
